FAERS Safety Report 6414958-2 (Version None)
Quarter: 2009Q4

REPORT INFORMATION
  Report Type: 
  Country: None (occurrence: None)
  Receive Date: 20091026
  Receipt Date: 20090625
  Transmission Date: 20100525
  Serious: No
  Sender: FDA-Public Use
  Company Number: US-ABBOTT-09P-163-0582407-00

PATIENT
  Sex: Female
  Weight: 72.186 kg

DRUGS (4)
  1. LUPRON DEPOT [Suspect]
     Indication: UTERINE LEIOMYOMA
     Dates: start: 20090622
  2. WELLBUTRIN XL [Suspect]
     Indication: DEPRESSION
     Route: 048
  3. OMEPRAZOLE DR [Concomitant]
     Indication: GASTRITIS
     Route: 048
  4. NORETHINDRONE [Concomitant]
     Indication: HOT FLUSH
     Route: 048
     Dates: start: 20090622

REACTIONS (1)
  - DEPRESSION [None]
